FAERS Safety Report 5160098-2 (Version None)
Quarter: 2006Q4

REPORT INFORMATION
  Report Type: 
  Country: None (occurrence: None)
  Receive Date: 20061115
  Receipt Date: 20061023
  Transmission Date: 20070319
  Serious: Yes (Hospitalization, Other)
  Sender: FDA-Public Use
  Company Number: USA0509108645

PATIENT
  Age: 53 Year
  Sex: Female

DRUGS (8)
  1. ALIMTA [Suspect]
     Indication: NON-SMALL CELL LUNG CANCER
     Dosage: 500 MG/M2, INTRAVENOUS
     Route: 042
     Dates: start: 20050601, end: 20050801
  2. TARCEVA [Concomitant]
  3. OXYCONTIN [Concomitant]
  4. NEURONTIN [Concomitant]
  5. RITALIN [Concomitant]
  6. ZOFRAN [Concomitant]
  7. ZOMETA [Concomitant]
  8. MULTIVITAMINS (ASCORBIC ACID, ERGOCALCIFEROL, FOLIC ACID, NICOTINAMIDE [Concomitant]

REACTIONS (10)
  - ACIDOSIS HYPERCHLORAEMIC [None]
  - BLOOD POTASSIUM INCREASED [None]
  - HYPOMAGNESAEMIA [None]
  - HYPOPHOSPHATAEMIA [None]
  - METABOLIC ACIDOSIS [None]
  - NEPHROGENIC DIABETES INSIPIDUS [None]
  - NEPHROPATHY TOXIC [None]
  - PATHOLOGICAL FRACTURE [None]
  - RENAL FAILURE ACUTE [None]
  - RENAL TUBULAR ACIDOSIS [None]
